FAERS Safety Report 18553124 (Version 1)
Quarter: 2020Q4

REPORT INFORMATION
  Report Type: Spontaneous
  Country: GB (occurrence: GB)
  Receive Date: 20201127
  Receipt Date: 20201127
  Transmission Date: 20210114
  Serious: Yes (Death, Other)
  Sender: FDA-Public Use
  Company Number: GB-INTERCEPT-PM2020002381

PATIENT
  Age: 75 Year
  Sex: Female

DRUGS (2)
  1. OCALIVA [Suspect]
     Active Substance: OBETICHOLIC ACID
     Dosage: 10 MG, 2X/WK
     Route: 048
     Dates: end: 202009
  2. OCALIVA [Suspect]
     Active Substance: OBETICHOLIC ACID
     Indication: PRIMARY BILIARY CHOLANGITIS
     Dosage: 5 MG, QD
     Route: 048

REACTIONS (6)
  - Gastrointestinal procedural complication [Fatal]
  - Colostomy [Fatal]
  - Social avoidant behaviour [Fatal]
  - Haemorrhoid operation [Fatal]
  - Food refusal [Fatal]
  - Haemorrhoids [Unknown]

NARRATIVE: CASE EVENT DATE: 2020
